FAERS Safety Report 14966941 (Version 2)
Quarter: 2018Q3

REPORT INFORMATION
  Report Type: Spontaneous
  Country: FR (occurrence: FR)
  Receive Date: 20180604
  Receipt Date: 20180720
  Transmission Date: 20181010
  Serious: Yes (Death, Other)
  Sender: FDA-Public Use
  Company Number: FR-AMGEN-FRASP2018073097

PATIENT
  Age: 71 Year
  Sex: Female
  Weight: 57 kg

DRUGS (4)
  1. PROLIA [Suspect]
     Active Substance: DENOSUMAB
     Indication: OSTEOPOROSIS
     Dosage: 60 MG, Q6MO
     Route: 058
     Dates: start: 20150310, end: 20180315
  2. NEBIVOLOL. [Concomitant]
     Active Substance: NEBIVOLOL
     Indication: HYPERTENSION
     Dosage: 0.5 MG, QD
     Dates: start: 2015
  3. ELISOR [Concomitant]
     Active Substance: PRAVASTATIN SODIUM
     Indication: LOW DENSITY LIPOPROTEIN INCREASED
     Dosage: 0.5 MG, UNK
  4. NIFEDIPINE. [Concomitant]
     Active Substance: NIFEDIPINE
     Dosage: 1 G, UNK

REACTIONS (3)
  - Herpes zoster [Recovering/Resolving]
  - Psoriasis [Not Recovered/Not Resolved]
  - Thoracic vertebral fracture [Fatal]

NARRATIVE: CASE EVENT DATE: 2016
